FAERS Safety Report 19268087 (Version 5)
Quarter: 2021Q3

REPORT INFORMATION
  Report Type: Spontaneous
  Country: AR (occurrence: AR)
  Receive Date: 20210517
  Receipt Date: 20210930
  Transmission Date: 20211014
  Serious: Yes (Other)
  Sender: FDA-Public Use
  Company Number: AR-PFIZER INC-2021498094

PATIENT
  Age: 31 Year
  Sex: Female

DRUGS (2)
  1. SOMAVERT [Suspect]
     Active Substance: PEGVISOMANT
     Indication: ACROMEGALY
     Dosage: 10 MG, 7X PER WEEK
     Dates: start: 20190805
  2. SOMAVERT [Suspect]
     Active Substance: PEGVISOMANT
     Dosage: UNK, EVERY OTHER DAY

REACTIONS (3)
  - Intentional product misuse [Unknown]
  - Malaise [Unknown]
  - Mental impairment [Unknown]
